FAERS Safety Report 4427834-1 (Version None)
Quarter: 2004Q3

REPORT INFORMATION
  Report Type: 
  Country: None (occurrence: None)
  Receive Date: 20040812
  Receipt Date: 20040804
  Transmission Date: 20050211
  Serious: Yes (Life-Threatening, Hospitalization)
  Sender: FDA-Public Use
  Company Number: K200401168

PATIENT
  Age: 59 Year
  Sex: Female

DRUGS (6)
  1. ALTACE [Suspect]
     Dosage: 2.5 MG, QD, ORAL
     Route: 048
     Dates: end: 20040702
  2. FUROSEMIDE [Suspect]
     Dosage: SEE IMAGE
     Route: 048
     Dates: end: 20040702
  3. FUROSEMIDE [Suspect]
     Dosage: SEE IMAGE
     Route: 048
     Dates: start: 20040701
  4. ALDACTONE [Suspect]
     Dosage: 25 MG, QD, ORAL
     Route: 048
     Dates: end: 20040702
  5. ALDACTONE [Suspect]
     Dosage: 25 MG, QD, ORAL
     Route: 048
     Dates: start: 20040701
  6. ESIDRIX [Suspect]
     Dosage: 25 MG, QD, ORAL
     Route: 048
     Dates: end: 20040702

REACTIONS (3)
  - DEHYDRATION [None]
  - GENERAL PHYSICAL HEALTH DETERIORATION [None]
  - RENAL FAILURE ACUTE [None]
